FAERS Safety Report 9792992 (Version 3)
Quarter: 2014Q1

REPORT INFORMATION
  Report Type: Other
  Country: IT (occurrence: IT)
  Receive Date: 20140102
  Receipt Date: 20140227
  Transmission Date: 20141002
  Serious: Yes (Life-Threatening, Hospitalization, Other)
  Sender: FDA-Public Use
  Company Number: IT-TAKEDA-2014TEU000006

PATIENT
  Age: 76 Year
  Sex: Male
  Weight: 87 kg

DRUGS (8)
  1. TANDEMACT [Suspect]
     Indication: DIABETES MELLITUS
     Dosage: 3 DF, QD
     Route: 048
     Dates: start: 20130801, end: 20131028
  2. TAVANIC [Interacting]
     Indication: BRONCHITIS
     Dosage: 1 DF, QD
     Route: 048
     Dates: start: 20131026, end: 20131028
  3. ONGLYZA [Interacting]
     Indication: DIABETES MELLITUS
     Dosage: 1 DF, QD
     Route: 048
     Dates: start: 20130801, end: 20131028
  4. GLUCOBAY [Interacting]
     Indication: DIABETES MELLITUS
     Dosage: 2 DF, QD
     Route: 048
     Dates: start: 20130801, end: 20131028
  5. TRIATEC HCT [Concomitant]
     Indication: HYPERTENSION
     Dosage: 2 DF, UNK
     Route: 048
     Dates: start: 20130101, end: 20131028
  6. SELOKEN                            /00376902/ [Concomitant]
     Indication: HYPERTENSION
     Dosage: 0.5 DF, UNK
     Route: 048
     Dates: start: 20130101, end: 20131028
  7. CARDURA [Concomitant]
     Indication: HYPERTENSION
     Dosage: 2 DF, UNK
     Route: 048
     Dates: start: 20130101, end: 20131028
  8. CARDIOASPIRIN [Concomitant]
     Indication: THROMBOSIS PROPHYLAXIS
     Dosage: 1 DF, UNK
     Route: 048
     Dates: start: 20130101, end: 20131028

REACTIONS (4)
  - Hypoglycaemic coma [Recovered/Resolved]
  - Confusional state [Recovered/Resolved]
  - Drug interaction [Recovered/Resolved]
  - Medication error [Unknown]
